FAERS Safety Report 20167879 (Version 2)
Quarter: 2021Q4

REPORT INFORMATION
  Report Type: Spontaneous
  Country: JP (occurrence: JP)
  Receive Date: 20211210
  Receipt Date: 20211222
  Transmission Date: 20220304
  Serious: Yes (Hospitalization)
  Sender: FDA-Public Use
  Company Number: JP-KYOWAKIRIN-2021AKK020685

PATIENT
  Age: 96 Year
  Sex: Male

DRUGS (9)
  1. DARBEPOETIN ALFA [Suspect]
     Active Substance: DARBEPOETIN ALFA
     Indication: Nephrogenic anaemia
     Dosage: 60 MICROGRAM
     Route: 042
     Dates: start: 202010, end: 202012
  2. DARBEPOETIN ALFA [Suspect]
     Active Substance: DARBEPOETIN ALFA
     Dosage: 60 MICROGRAM
     Route: 042
     Dates: start: 202108, end: 202109
  3. DAPRODUSTAT [Suspect]
     Active Substance: DAPRODUSTAT
     Indication: Nephrogenic anaemia
     Dosage: 4 MILLIGRAM
     Route: 048
     Dates: start: 202012, end: 202107
  4. DAPRODUSTAT [Suspect]
     Active Substance: DAPRODUSTAT
     Dosage: 4 MILLIGRAM
     Route: 048
     Dates: start: 202109
  5. IRON [Suspect]
     Active Substance: IRON
     Indication: Product used for unknown indication
     Dosage: 50 MG
     Route: 065
     Dates: start: 202010
  6. IRON [Suspect]
     Active Substance: IRON
     Dosage: 12.5 MG
     Route: 065
     Dates: start: 202102
  7. IRON [Suspect]
     Active Substance: IRON
     Dosage: 25 MG
     Route: 065
     Dates: start: 202106, end: 202107
  8. IRON [Suspect]
     Active Substance: IRON
     Dosage: 50 MG
     Route: 065
     Dates: start: 202108
  9. IRON [Suspect]
     Active Substance: IRON
     Dosage: 12.5 MG
     Route: 065

REACTIONS (1)
  - Feeding disorder [Unknown]
